FAERS Safety Report 20894414 (Version 1)
Quarter: 2022Q2

REPORT INFORMATION
  Report Type: Spontaneous
  Country: CN (occurrence: CN)
  Receive Date: 20220531
  Receipt Date: 20220531
  Transmission Date: 20220721
  Serious: Yes (Hospitalization)
  Sender: FDA-Public Use
  Company Number: None

PATIENT
  Age: 73 Year
  Sex: Female
  Weight: 61.4 kg

DRUGS (6)
  1. CYCLOPHOSPHAMIDE [Suspect]
     Active Substance: CYCLOPHOSPHAMIDE
     Indication: Neoplasm malignant
     Dosage: 0.9 G, QD,CYCLOPHOSPHAMIDE(0.9G)+SODIUM CHLORIDE INJECTION(100ML), 600 MG/M2 D1 X 21 DAYS
     Route: 041
     Dates: start: 20220317, end: 20220318
  2. HERCEPTIN [Suspect]
     Active Substance: TRASTUZUMAB
     Indication: Neoplasm malignant
     Dosage: 360.000000MG ONCE DAILY,TRASTUZUMAB(360MG)+SODIUM CHLORIDE INJECTION(250ML),  6MG/KG D3 X Q21 DAYS
     Route: 041
     Dates: start: 20220317, end: 20220318
  3. PACLITAXEL [Suspect]
     Active Substance: PACLITAXEL
     Indication: Neoplasm malignant
     Dosage: 400.000000MG ONCE DAILY, PACLITAXEL(400MG)+SODIUM CHLORIDE INJECTION(80ML), 260 MG/M2 D1 21 DAYS X4
     Route: 041
     Dates: start: 20220317, end: 20220318
  4. SODIUM CHLORIDE [Suspect]
     Active Substance: SODIUM CHLORIDE
     Indication: Medication dilution
     Dosage: 100.000000ML ONCE DAILY, CYCLOPHOSPHAMIDE(0.9G)+SODIUM CHLORIDE INJECTION(100ML)
     Route: 041
     Dates: start: 20220317, end: 20220318
  5. SODIUM CHLORIDE [Suspect]
     Active Substance: SODIUM CHLORIDE
     Dosage: 250.000000 ML ONCE DAILY, TRASTUZUMAB(360MG)+SODIUM CHLORIDE INJECTION(250ML)
     Route: 041
     Dates: start: 20220317, end: 20220318
  6. SODIUM CHLORIDE [Suspect]
     Active Substance: SODIUM CHLORIDE
     Dosage: 80.000000 ML, ONCE A DAY, PACLITAXEL(400MG)+SODIUM CHLORIDE INJECTION(80ML)
     Route: 041
     Dates: start: 20220317, end: 20220318

REACTIONS (2)
  - Hepatic function abnormal [Recovering/Resolving]
  - Condition aggravated [Recovering/Resolving]

NARRATIVE: CASE EVENT DATE: 20220407
